FAERS Safety Report 6387130-2 (Version None)
Quarter: 2009Q4

REPORT INFORMATION
  Report Type: 
  Country: None (occurrence: None)
  Receive Date: 20091002
  Receipt Date: 20090922
  Transmission Date: 20100525
  Serious: Yes (Other)
  Sender: FDA-Public Use
  Company Number: US-SANOFI-SYNTHELABO-A03200904329

PATIENT
  Sex: Female

DRUGS (2)
  1. ZOLPIDEM [Suspect]
     Indication: DRUG USE FOR UNKNOWN INDICATION
     Route: 048
  2. SEROQUEL [Concomitant]
     Indication: DEPRESSION
     Dosage: UNK
     Route: 065

REACTIONS (3)
  - AMNESIA [None]
  - ROAD TRAFFIC ACCIDENT [None]
  - SHOPLIFTING [None]
